FAERS Safety Report 24961126 (Version 1)
Quarter: 2025Q1

REPORT INFORMATION
  Report Type: Spontaneous
  Country: US (occurrence: None)
  Receive Date: 20250211
  Receipt Date: 20250211
  Transmission Date: 20250409
  Serious: Yes (unspecified)
  Sender: FDA-CTU
  Company Number: None

PATIENT
  Age: 44 Year
  Sex: Female
  Weight: 70.65 kg

DRUGS (1)
  1. PANZYGA [Suspect]
     Active Substance: HUMAN IMMUNOGLOBULIN G
     Indication: Myasthenic syndrome
     Dosage: OTHER FREQUENCY : Q6WEEKS;?
     Route: 041

REACTIONS (3)
  - Infusion related reaction [None]
  - Urticaria [None]
  - Paraesthesia oral [None]

NARRATIVE: CASE EVENT DATE: 20250210
